FAERS Safety Report 15476077 (Version 1)
Quarter: 2018Q4

REPORT INFORMATION
  Report Type: Report from Study
  Country: CA (occurrence: CA)
  Receive Date: 20181009
  Receipt Date: 20181009
  Transmission Date: 20190205
  Serious: Yes (Other)
  Sender: FDA-Public Use
  Company Number: PHHY2018CA119473

PATIENT
  Sex: Female

DRUGS (1)
  1. SANDOSTATIN LAR DEPOT [Suspect]
     Active Substance: OCTREOTIDE ACETATE
     Indication: PATERNAL EXPOSURE DURING PREGNANCY
     Dosage: UNK
     Route: 050

REACTIONS (2)
  - Premature delivery [Unknown]
  - Exposure via partner [Unknown]

NARRATIVE: CASE EVENT DATE: 2018
